FAERS Safety Report 20567853 (Version 1)
Quarter: 2022Q1

REPORT INFORMATION
  Report Type: Spontaneous
  Country: US (occurrence: None)
  Receive Date: 20220308
  Receipt Date: 20220308
  Transmission Date: 20220423
  Serious: Yes (Other)
  Sender: FDA-Public Use
  Company Number: None

PATIENT
  Age: 57 Year
  Sex: Female
  Weight: 106.4 kg

DRUGS (10)
  1. EVEROLIMUS [Suspect]
     Active Substance: EVEROLIMUS
     Indication: Breast cancer female
     Dosage: FREQUENCY : DAILY;?
     Route: 048
     Dates: start: 20211130, end: 20211214
  2. EXEMESTANE [Concomitant]
  3. Pepcid [Concomitant]
  4. CHONDROITIN SULFATE (BOVINE) [Concomitant]
     Active Substance: CHONDROITIN SULFATE (BOVINE)
  5. BIOTIN [Concomitant]
     Active Substance: BIOTIN
  6. Zometa IV [Concomitant]
  7. PROAIR HFA [Concomitant]
     Active Substance: ALBUTEROL SULFATE
  8. EFFEXOR [Concomitant]
  9. SYMBICORT [Concomitant]
  10. vit D2 50,000 IU [Concomitant]

REACTIONS (6)
  - Ear pain [None]
  - Sinusitis [None]
  - Productive cough [None]
  - Sputum discoloured [None]
  - Otitis media acute [None]
  - SARS-CoV-2 test positive [None]

NARRATIVE: CASE EVENT DATE: 20211214
